FAERS Safety Report 7748420-1 (Version None)
Quarter: 2011Q3

REPORT INFORMATION
  Report Type: 
  Country: None (occurrence: None)
  Receive Date: 20110913
  Receipt Date: 20110907
  Transmission Date: 20111222
  Serious: Yes (Hospitalization, Other)
  Sender: FDA-Public Use
  Company Number: US-AMGEN-USASP2011045887

PATIENT
  Age: 82 Year
  Sex: Female

DRUGS (2)
  1. PROLIA [Suspect]
     Indication: OSTEOPOROSIS POSTMENOPAUSAL
     Dosage: UNK UNK, Q6MO
     Route: 058
     Dates: start: 20110721
  2. ANTIHYPERTENSIVES [Concomitant]

REACTIONS (11)
  - BLOOD ELECTROLYTES ABNORMAL [None]
  - DECREASED APPETITE [None]
  - DYSGEUSIA [None]
  - DEHYDRATION [None]
  - WHITE BLOOD CELL COUNT INCREASED [None]
  - FATIGUE [None]
  - PLATELET COUNT DECREASED [None]
  - HYPOTENSION [None]
  - BLOOD IRON DECREASED [None]
  - BLOOD PRESSURE INCREASED [None]
  - ANAEMIA [None]
